FAERS Safety Report 7486471-5 (Version None)
Quarter: 2011Q2

REPORT INFORMATION
  Report Type: 
  Country: None (occurrence: None)
  Receive Date: 20110517
  Receipt Date: 20110414
  Transmission Date: 20111010
  Serious: No
  Sender: FDA-Public Use
  Company Number: US-BAYER-2011-033733

PATIENT
  Age: 16 Year
  Sex: Female

DRUGS (3)
  1. ALEVE (CAPLET) [Suspect]
     Indication: DYSMENORRHOEA
     Dosage: 4 DF, UNK
     Route: 048
     Dates: start: 20110413, end: 20110414
  2. METFORMIN HCL [Concomitant]
  3. TOPAMAX [Concomitant]

REACTIONS (1)
  - NO ADVERSE EVENT [None]
